FAERS Safety Report 9846460 (Version 1)
Quarter: 2013Q4

REPORT INFORMATION
  Report Type: Spontaneous
  Country: US (occurrence: None)
  Receive Date: 20131223
  Receipt Date: 20131223
  Transmission Date: 20140711
  Serious: No
  Sender: FDA-Public Use
  Company Number: CABO-13003365

PATIENT
  Age: 25 Year
  Sex: Male

DRUGS (4)
  1. COMETRIQ (CABOZANTINIB) CAPSULE [Suspect]
     Indication: THYROID CANCER
     Dates: start: 20130917
  2. LEVOTHYROXINE(LEVOTHYROXINE SODIUM) [Concomitant]
  3. PERCOCET(OXYCODONE HYDROCHLORIDE PARACETAMOL) [Concomitant]
  4. CALCITRIOL-ALMOND OIL(CALCITRIOL) [Concomitant]

REACTIONS (12)
  - Hunger [None]
  - Back pain [None]
  - Diarrhoea [None]
  - Fatigue [None]
  - Nausea [None]
  - Decreased appetite [None]
  - Mucosal inflammation [None]
  - Pain in extremity [None]
  - Weight decreased [None]
  - Hair colour changes [None]
  - Hypoaesthesia [None]
  - Oral pain [None]
